FAERS Safety Report 5024664-7 (Version None)
Quarter: 2006Q2

REPORT INFORMATION
  Report Type: 
  Country: None (occurrence: None)
  Receive Date: 20060613
  Receipt Date: 20060417
  Transmission Date: 20061013
  Serious: Yes (Hospitalization)
  Sender: FDA-Public Use
  Company Number: JP-ROCHE-445153

PATIENT
  Age: 71 Year
  Sex: Male
  Weight: 70 kg

DRUGS (9)
  1. TAMIFLU [Suspect]
     Route: 048
     Dates: start: 20060401, end: 20060401
  2. MINIPRESS [Concomitant]
     Route: 048
  3. ALDOMET [Concomitant]
     Route: 048
  4. CLARITIN [Concomitant]
     Route: 048
  5. COFDENIN A [Concomitant]
     Dosage: GENERIC REPORTED AS TIPEPIDINE HIBENZATE.
     Route: 048
  6. PL [Concomitant]
     Route: 048
  7. NEUER [Concomitant]
     Dosage: DOSE FORM REPORTED AS ORAL FORMULATION (NOT OTHERWISE SPECIFIED). GENERIC REPORTED AS CETRAXATE HYD+
     Route: 048
  8. HUSCODE [Concomitant]
     Dosage: DOSE FORM REPORTED AS ORAL FORMULATION (NOT OTHERWISE SPECIFIED)
     Route: 048
  9. SENEGA [Concomitant]
     Route: 048

REACTIONS (2)
  - ABNORMAL BEHAVIOUR [None]
  - BALANCE DISORDER [None]
